FAERS Safety Report 7163272-9 (Version None)
Quarter: 2010Q4

REPORT INFORMATION
  Report Type: 
  Country: None (occurrence: None)
  Receive Date: 20101215
  Receipt Date: 20100623
  Transmission Date: 20110411
  Serious: No
  Sender: FDA-Public Use
  Company Number: US-ABBOTT-10P-163-0653049-00

PATIENT
  Age: 67 Year
  Sex: Male

DRUGS (1)
  1. HYTRIN [Suspect]
     Indication: BENIGN PROSTATIC HYPERPLASIA

REACTIONS (3)
  - DYSURIA [None]
  - MICTURITION URGENCY [None]
  - URINE OUTPUT DECREASED [None]
